FAERS Safety Report 18036557 (Version 1)
Quarter: 2020Q3

REPORT INFORMATION
  Report Type: Spontaneous
  Country: ES (occurrence: ES)
  Receive Date: 20200717
  Receipt Date: 20200717
  Transmission Date: 20201103
  Serious: Yes (Hospitalization, Other)
  Sender: FDA-Public Use
  Company Number: ES-ACCORD-190711

PATIENT
  Age: 54 Year
  Sex: Male

DRUGS (5)
  1. PREDNISONE. [Suspect]
     Active Substance: PREDNISONE
     Indication: COGAN^S SYNDROME
  2. INFLIXIMAB [Suspect]
     Active Substance: INFLIXIMAB
     Indication: COGAN^S SYNDROME
  3. CYCLOPHOSPHAMIDE/CYCLOPHOSPHAMIDE MONOHYDRATE [Suspect]
     Active Substance: CYCLOPHOSPHAMIDE
     Indication: COGAN^S SYNDROME
  4. AZATHIOPRINE. [Suspect]
     Active Substance: AZATHIOPRINE
     Indication: COGAN^S SYNDROME
  5. METHOTREXATE. [Suspect]
     Active Substance: METHOTREXATE
     Indication: COGAN^S SYNDROME

REACTIONS (6)
  - Myocardial ischaemia [Unknown]
  - Chronic hepatitis B [Unknown]
  - Off label use [Unknown]
  - Aortic valve disease [Unknown]
  - Mitral valve disease [Unknown]
  - Peripheral sensorimotor neuropathy [Unknown]
